FAERS Safety Report 6316276-X (Version None)
Quarter: 2009Q3

REPORT INFORMATION
  Report Type: 
  Country: None (occurrence: None)
  Receive Date: 20090819
  Receipt Date: 20090819
  Transmission Date: 20100115
  Serious: Yes (Hospitalization)
  Sender: FDA-Public Use
  Company Number: None

PATIENT
  Age: 63 Year
  Sex: Male
  Weight: 114 kg

DRUGS (1)
  1. NAPROXEN [Suspect]
     Dosage: DATES OF USE: -1 WEEK PRIOR TO ADMISSIO

REACTIONS (1)
  - THROMBOCYTOPENIA [None]
